FAERS Safety Report 7458389-5 (Version None)
Quarter: 2011Q2

REPORT INFORMATION
  Report Type: 
  Country: None (occurrence: None)
  Receive Date: 20110504
  Receipt Date: 20110428
  Transmission Date: 20111010
  Serious: Yes (Hospitalization)
  Sender: FDA-Public Use
  Company Number: A0923040A

PATIENT
  Sex: Female

DRUGS (12)
  1. AVAPRO [Concomitant]
     Dosage: 300MG PER DAY
     Route: 065
  2. LYRICA [Concomitant]
     Dosage: 75MG TWICE PER DAY
     Route: 065
  3. TYKERB [Suspect]
     Dosage: 1250MG PER DAY
     Route: 048
     Dates: start: 20110212, end: 20110101
  4. EFFEXOR [Concomitant]
     Dosage: 150MG PER DAY
     Route: 065
  5. RADIATION [Concomitant]
     Route: 065
  6. APO-TRIAZIDE [Concomitant]
     Route: 065
  7. CELEBREX [Concomitant]
     Dosage: 200MG PER DAY
     Route: 065
  8. SUPEUDOL [Concomitant]
     Dosage: 5MG AS REQUIRED
     Route: 065
  9. AMLODIPINE BESYLATE [Concomitant]
     Dosage: 7.5MG PER DAY
     Route: 065
  10. OXYCONTIN [Concomitant]
     Dosage: 30MG TWICE PER DAY
     Route: 065
  11. XELODA [Concomitant]
     Route: 065
  12. OXAZEPAM [Concomitant]
     Dosage: 30MG AT NIGHT
     Route: 065

REACTIONS (3)
  - NAUSEA [None]
  - VOMITING [None]
  - DEHYDRATION [None]
